FAERS Safety Report 12974273 (Version 1)
Quarter: 2016Q4

REPORT INFORMATION
  Report Type: Spontaneous
  Country: FR (occurrence: FR)
  Receive Date: 20161125
  Receipt Date: 20161125
  Transmission Date: 20170207
  Serious: Yes (Hospitalization)
  Sender: FDA-Public Use
  Company Number: FR-ROCHE-1858171

PATIENT
  Age: 61 Year
  Sex: Female
  Weight: 96 kg

DRUGS (3)
  1. XELODA [Suspect]
     Active Substance: CAPECITABINE
     Indication: BREAST CANCER
     Route: 048
     Dates: start: 20160831
  2. XELODA [Suspect]
     Active Substance: CAPECITABINE
     Indication: METASTASES TO CENTRAL NERVOUS SYSTEM
  3. TYVERB [Concomitant]
     Active Substance: LAPATINIB
     Route: 048

REACTIONS (9)
  - Renal failure [Recovering/Resolving]
  - Nausea [Recovering/Resolving]
  - Acne [Recovering/Resolving]
  - Vomiting [Recovering/Resolving]
  - Hypovolaemic shock [Recovering/Resolving]
  - General physical health deterioration [Recovering/Resolving]
  - Anaemia [Recovering/Resolving]
  - Diarrhoea [Recovering/Resolving]
  - Fungal oesophagitis [Recovering/Resolving]
